FAERS Safety Report 13869372 (Version 1)
Quarter: 2017Q3

REPORT INFORMATION
  Report Type: Spontaneous
  Country: FR (occurrence: FR)
  Receive Date: 20170815
  Receipt Date: 20170815
  Transmission Date: 20171127
  Serious: Yes (Hospitalization, Other)
  Sender: FDA-Public Use
  Company Number: FR-MYLANLABS-2017M1049383

PATIENT

DRUGS (2)
  1. SALBUTAMOL MYLAN 5 MG / 2,5 ML, SOLUTION POUR INHALATION [Suspect]
     Active Substance: ALBUTEROL
     Indication: ASTHMATIC CRISIS
     Dosage: 2.5 MG, ONE SINGLE INTAKE
     Route: 055
     Dates: start: 20160628, end: 20160628
  2. SOLUPRED [Concomitant]
     Active Substance: PREDNISOLONE
     Indication: ASTHMATIC CRISIS
     Dosage: UNK
     Route: 048

REACTIONS (2)
  - Product substitution issue [Not Recovered/Not Resolved]
  - Hypoxia [Not Recovered/Not Resolved]

NARRATIVE: CASE EVENT DATE: 20160628
